FAERS Safety Report 23363424 (Version 1)
Quarter: 2024Q1

REPORT INFORMATION
  Report Type: Spontaneous
  Country: FI (occurrence: FI)
  Receive Date: 20240103
  Receipt Date: 20240103
  Transmission Date: 20240409
  Serious: Yes (Hospitalization)
  Sender: FDA-Public Use
  Company Number: None

PATIENT
  Age: 57 Year
  Sex: Female

DRUGS (1)
  1. KEYTRUDA [Suspect]
     Active Substance: PEMBROLIZUMAB
     Indication: Squamous cell carcinoma of the cervix
     Dosage: 200 MG
     Route: 042
     Dates: start: 20220222

REACTIONS (4)
  - Blood pressure increased [Recovered/Resolved]
  - Oxygen saturation decreased [Recovered/Resolved]
  - Chest discomfort [Recovered/Resolved]
  - Throat irritation [Recovered/Resolved]

NARRATIVE: CASE EVENT DATE: 20220222
